FAERS Safety Report 25180855 (Version 1)
Quarter: 2025Q2

REPORT INFORMATION
  Report Type: Report from Study
  Country: DE (occurrence: DE)
  Receive Date: 20250409
  Receipt Date: 20250409
  Transmission Date: 20250717
  Serious: Yes (Hospitalization)
  Sender: ABBVIE
  Company Number: DE-ABBVIE-6214028

PATIENT
  Age: 31 Year
  Sex: Female
  Weight: 128 kg

DRUGS (2)
  1. SKYRIZI [Suspect]
     Active Substance: RISANKIZUMAB-RZAA
     Indication: Psoriasis
     Route: 058
     Dates: start: 20210201
  2. TILIDINE [Concomitant]
     Active Substance: TILIDINE
     Indication: Product used for unknown indication
     Route: 048
     Dates: start: 20210701

REACTIONS (3)
  - Intervertebral disc protrusion [Not Recovered/Not Resolved]
  - Neck pain [Not Recovered/Not Resolved]
  - Myalgia [Not Recovered/Not Resolved]

NARRATIVE: CASE EVENT DATE: 20210716
